FAERS Safety Report 17604226 (Version 1)
Quarter: 2020Q1

REPORT INFORMATION
  Report Type: Spontaneous
  Country: US (occurrence: US)
  Receive Date: 20200331
  Receipt Date: 20200331
  Transmission Date: 20200409
  Serious: Yes (Other)
  Sender: FDA-Public Use
  Company Number: US-PFIZER INC-2020131547

PATIENT
  Age: 81 Year
  Sex: Female

DRUGS (1)
  1. PREGABALIN. [Suspect]
     Active Substance: PREGABALIN
     Dosage: UNK

REACTIONS (7)
  - Drug dependence [Unknown]
  - Malaise [Unknown]
  - Dyspnoea [Unknown]
  - Byssinosis [Unknown]
  - Therapeutic response unexpected [Unknown]
  - Nasopharyngitis [Unknown]
  - Hypoacusis [Unknown]
